FAERS Safety Report 6603370-9 (Version None)
Quarter: 2010Q1

REPORT INFORMATION
  Report Type: 
  Country: None (occurrence: None)
  Receive Date: 20100226
  Receipt Date: 20090227
  Transmission Date: 20100710
  Serious: No
  Sender: FDA-Public Use
  Company Number: A0771594A

PATIENT
  Sex: Female

DRUGS (3)
  1. VALTREX [Suspect]
     Indication: GENITAL HERPES
     Dosage: 500MG PER DAY
     Route: 048
     Dates: start: 20040201
  2. BLACK COHOSH [Concomitant]
  3. CALCIUM [Concomitant]

REACTIONS (8)
  - ARTHRALGIA [None]
  - ARTHRITIS [None]
  - BLEPHAROSPASM [None]
  - DIARRHOEA [None]
  - DRUG EFFECT DECREASED [None]
  - HERPES VIRUS INFECTION [None]
  - HOT FLUSH [None]
  - PRURITUS [None]
